FAERS Safety Report 10053076 (Version 1)
Quarter: 2014Q2

REPORT INFORMATION
  Report Type: Report from Study
  Country: DE (occurrence: DE)
  Receive Date: 20140402
  Receipt Date: 20140402
  Transmission Date: 20141212
  Serious: Yes (Hospitalization)
  Sender: FDA-Public Use
  Company Number: PHHO2014DE002837

PATIENT
  Sex: 0

DRUGS (1)
  1. AMN107 [Suspect]
     Indication: ACUTE LYMPHOCYTIC LEUKAEMIA
     Dosage: 400 MG, BID
     Route: 048
     Dates: start: 20140118

REACTIONS (1)
  - Pulmonary embolism [Recovering/Resolving]
